FAERS Safety Report 13738216 (Version 1)
Quarter: 2017Q3

REPORT INFORMATION
  Report Type: Spontaneous
  Country: US (occurrence: US)
  Receive Date: 20170710
  Receipt Date: 20170710
  Transmission Date: 20171127
  Serious: No
  Sender: FDA-Public Use
  Company Number: US-BEH-2017081948

PATIENT
  Age: 43 Year
  Sex: Female

DRUGS (1)
  1. HIZENTRA [Suspect]
     Active Substance: HUMAN IMMUNOGLOBULIN G
     Indication: IMMUNODEFICIENCY COMMON VARIABLE
     Dosage: 7 G, QW
     Route: 058
     Dates: start: 20170502, end: 20170509

REACTIONS (4)
  - Dizziness [Unknown]
  - Swelling [Not Recovered/Not Resolved]
  - Hypotension [Unknown]
  - Cortisol increased [Unknown]

NARRATIVE: CASE EVENT DATE: 20170509
